FAERS Safety Report 8166922-3 (Version None)
Quarter: 2012Q1

REPORT INFORMATION
  Report Type: 
  Country: None (occurrence: None)
  Receive Date: 20120227
  Receipt Date: 20101115
  Transmission Date: 20120608
  Serious: Yes (Hospitalization)
  Sender: FDA-Public Use
  Company Number: FR-ROCHE-1041516

PATIENT
  Sex: Male

DRUGS (16)
  1. PENTACARINAT [Concomitant]
     Dates: start: 20090623
  2. BLINDED MABTHERA [Suspect]
     Indication: TRANSPLANT REJECTION
     Route: 042
     Dates: start: 20090627, end: 20090627
  3. VALGANCICLOVIR [Concomitant]
     Dates: start: 20090626
  4. IMMUNE GLOBULIN (HUMAN) [Suspect]
     Indication: PRODUCT USED FOR UNKNOWN INDICATION
     Dates: start: 20090703, end: 20090704
  5. LOVENOX [Concomitant]
     Dosage: 0.4ML, 4000 UISOLUTION FOR INJECTION
     Dates: start: 20090625, end: 20090706
  6. MABTHERA [Suspect]
     Indication: TRANSPLANT REJECTION
     Route: 042
     Dates: start: 20090703, end: 20090703
  7. MYCOPHENOLATE MOFETIL (CELLCEPT) [Concomitant]
     Dates: start: 20081228
  8. ESOMEPRAZOLE SODIUM [Concomitant]
     Route: 002
     Dates: start: 20090625
  9. KAYEXALATE [Concomitant]
     Dates: start: 20090702
  10. CORDARONE [Concomitant]
     Dates: start: 20081229
  11. ATORVASTATIN [Concomitant]
     Dates: start: 20090623
  12. HYPERIUM [Concomitant]
     Dates: start: 20090130
  13. HUMALOG [Concomitant]
  14. TACROLIMUS [Concomitant]
     Dates: start: 20090624
  15. AMLODIPINE BESYLATE [Concomitant]
     Dates: start: 20090102
  16. SECTRAL [Concomitant]
     Dates: start: 20081231

REACTIONS (3)
  - ISCHAEMIC STROKE [None]
  - HEMIANOPIA HOMONYMOUS [None]
  - AMAUROSIS [None]
